FAERS Safety Report 9551008 (Version 5)
Quarter: 2015Q1

REPORT INFORMATION
  Report Type: Report from Study
  Country: US (occurrence: US)
  Receive Date: 20130924
  Receipt Date: 20150217
  Transmission Date: 20150721
  Serious: Yes (Hospitalization, Other)
  Sender: FDA-Public Use
  Company Number: US-SANOFI-AVENTIS-2013SA052011

PATIENT
  Age: 38 Year
  Sex: Male
  Weight: 90.71 kg

DRUGS (2)
  1. AUBAGIO [Suspect]
     Active Substance: TERIFLUNOMIDE
     Indication: MULTIPLE SCLEROSIS
     Dosage: DOSE-1 AT NIGHT
     Route: 048
     Dates: start: 20130610, end: 20150115
  2. AUBAGIO [Suspect]
     Active Substance: TERIFLUNOMIDE
     Indication: MULTIPLE SCLEROSIS
     Route: 048
     Dates: start: 20120430

REACTIONS (13)
  - Drug ineffective [Unknown]
  - Memory impairment [Unknown]
  - Condition aggravated [Not Recovered/Not Resolved]
  - Urinary tract infection [Not Recovered/Not Resolved]
  - Hypogeusia [Not Recovered/Not Resolved]
  - Dyspnoea [Unknown]
  - Dry mouth [Unknown]
  - Vision blurred [Unknown]
  - Drug dose omission [Unknown]
  - Motor dysfunction [Not Recovered/Not Resolved]
  - Visual impairment [Unknown]
  - Bladder catheterisation [Unknown]
  - Feeling of despair [Unknown]

NARRATIVE: CASE EVENT DATE: 2014
